FAERS Safety Report 8993276 (Version 2)
Quarter: 2013Q1

REPORT INFORMATION
  Report Type: Spontaneous
  Country: DK (occurrence: IT)
  Receive Date: 20130102
  Receipt Date: 20130109
  Transmission Date: 20140127
  Serious: Yes (Hospitalization)
  Sender: FDA-Public Use
  Company Number: IT-FRI-1000041325

PATIENT
  Age: 29 Year
  Sex: Female

DRUGS (6)
  1. ESCITALOPRAM [Suspect]
     Indication: DRUG ABUSE
     Route: 048
     Dates: start: 20121211, end: 20121211
  2. TRITTICO [Suspect]
     Indication: DRUG ABUSE
     Route: 048
     Dates: start: 20121211, end: 20121211
  3. TEGRETOL [Suspect]
     Indication: DRUG ABUSE
     Route: 048
     Dates: start: 20121211, end: 20121211
  4. RIVOTRIL [Suspect]
     Indication: DRUG ABUSE
     Route: 048
     Dates: start: 20121211, end: 20121211
  5. ZYPREXA [Suspect]
     Indication: DRUG ABUSE
     Route: 048
     Dates: start: 20121211, end: 20121211
  6. DULCOLAX [Suspect]
     Indication: DRUG ABUSE
     Route: 048
     Dates: start: 20121211, end: 20121211

REACTIONS (3)
  - Self injurious behaviour [Unknown]
  - Drug abuse [Unknown]
  - Overdose [Unknown]
